FAERS Safety Report 4322520-0 (Version None)
Quarter: 2004Q1

REPORT INFORMATION
  Report Type: 
  Country: None (occurrence: None)
  Receive Date: 20040324
  Receipt Date: 20030709
  Transmission Date: 20041129
  Serious: Yes (Disabling, Other)
  Sender: FDA-Public Use
  Company Number: 200316878GDDC

PATIENT
  Age: 55 Year
  Sex: Male

DRUGS (3)
  1. AMARYL [Suspect]
     Indication: DIABETES MELLITUS NON-INSULIN-DEPENDENT
     Route: 048
     Dates: start: 19960101, end: 20030101
  2. METFORMIN HCL [Concomitant]
     Route: 048
     Dates: start: 20030301, end: 20030401
  3. DICLOFENAC SODIUM [Concomitant]
     Route: 048
     Dates: start: 19950101, end: 20030101

REACTIONS (20)
  - BETA GLOBULIN INCREASED [None]
  - BIOPSY LIVER ABNORMAL [None]
  - BLOOD ALBUMIN ABNORMAL [None]
  - BLOOD GLUCOSE INCREASED [None]
  - COAGULATION TIME PROLONGED [None]
  - DEPRESSED LEVEL OF CONSCIOUSNESS [None]
  - ECCHYMOSIS [None]
  - ELECTROPHORESIS PROTEIN ABNORMAL [None]
  - EPISTAXIS [None]
  - GASTRITIS [None]
  - GASTRITIS EROSIVE [None]
  - GLUCOSE URINE PRESENT [None]
  - HEPATIC CIRRHOSIS [None]
  - LABORATORY TEST ABNORMAL [None]
  - PANCYTOPENIA [None]
  - PORTAL HYPERTENSION [None]
  - RED BLOOD CELL SEDIMENTATION RATE INCREASED [None]
  - SPLEEN CONGESTION [None]
  - SPLENOMEGALY [None]
  - VARICES OESOPHAGEAL [None]
